FAERS Safety Report 10024007 (Version 1)
Quarter: 2014Q1

REPORT INFORMATION
  Report Type: Spontaneous
  Country: US (occurrence: None)
  Receive Date: 20140304
  Receipt Date: 20140304
  Transmission Date: 20141002
  Serious: Yes (Hospitalization, Other)
  Sender: FDA-Public Use
  Company Number: RB-39437-2012

PATIENT
  Age: 45 Year
  Sex: Female

DRUGS (12)
  1. SUBOXONE 8 MG [Suspect]
     Indication: DRUG DEPENDENCE
     Dosage: DOSING DETAILS UNKNOWN), 24 MG SUBLINGUAL
     Route: 060
     Dates: start: 201206, end: 2013
  2. SUBOXONE 8 MG [Suspect]
     Indication: PAIN
     Dosage: DOSING DETAILS UNKNOWN), 24 MG SUBLINGUAL
     Route: 060
     Dates: start: 201206, end: 2013
  3. SUBOXONE 8 MG [Suspect]
     Indication: PAIN
     Dosage: 8 MG, BID, DOSING DETAILS UNKNOWN
     Route: 048
     Dates: end: 201202
  4. NAPROSYN [Concomitant]
  5. CLONIDINE [Concomitant]
  6. NEURONTIN [Concomitant]
  7. TEGRETOL [Concomitant]
  8. BACLOFEN [Concomitant]
  9. BUPRENORPHINE 8 MG [Suspect]
     Indication: DRUG DEPENDENCE
     Route: 060
     Dates: start: 2013
  10. PAXIL [Suspect]
     Indication: DEPRESSION
     Dosage: DOSING DETAILS UNKNOWN ORAL
     Route: 048
  11. DOXEPIN [Suspect]
     Indication: INSOMNIA
     Dosage: DOSING DETAILS UNKNOWN ORAL
     Route: 048
  12. VALIUM [Suspect]
     Indication: ANXIETY
     Dosage: DOSING DETAILS UNKNOWN ORAL
     Route: 048

REACTIONS (19)
  - Off label use [None]
  - Menstrual disorder [None]
  - Nicotine dependence [None]
  - Feeling abnormal [None]
  - Anxiety [None]
  - Dysuria [None]
  - Hypersensitivity [None]
  - Heart rate increased [None]
  - Oral administration complication [None]
  - Nausea [None]
  - Vomiting [None]
  - Drug dependence [None]
  - Drug withdrawal syndrome [None]
  - Tremor [None]
  - Vomiting projectile [None]
  - Depression [None]
  - Insomnia [None]
  - Condition aggravated [None]
  - Bronchitis [None]
